FAERS Safety Report 11967029 (Version 1)
Quarter: 2016Q1

REPORT INFORMATION
  Report Type: Spontaneous
  Country: US (occurrence: US)
  Receive Date: 20160127
  Receipt Date: 20160127
  Transmission Date: 20160526
  Serious: Yes (Hospitalization)
  Sender: FDA-Public Use
  Company Number: US-UNITED THERAPEUTICS-UNT-2016-000582

PATIENT
  Age: 19 Year
  Sex: Female
  Weight: 40.82 kg

DRUGS (3)
  1. COUMADIN [Concomitant]
     Active Substance: WARFARIN SODIUM
     Indication: PRODUCT USED FOR UNKNOWN INDICATION
  2. REMODULIN [Suspect]
     Active Substance: TREPROSTINIL
     Indication: PULMONARY ARTERIAL HYPERTENSION
     Dosage: 0.320 ?G/KG, CONTINUING
     Route: 058
     Dates: start: 20150827
  3. REMODULIN [Suspect]
     Active Substance: TREPROSTINIL
     Dosage: 0.022 ?G/KG, CONTINUING
     Route: 058

REACTIONS (6)
  - Arrhythmia [Unknown]
  - Collateral circulation [Unknown]
  - Haemoptysis [Unknown]
  - Pulmonary hypertension [Unknown]
  - Syncope [Unknown]
  - Dyspnoea [Unknown]

NARRATIVE: CASE EVENT DATE: 201601
